FAERS Safety Report 5204772-8 (Version None)
Quarter: 2007Q1

REPORT INFORMATION
  Report Type: 
  Country: None (occurrence: None)
  Receive Date: 20070110
  Receipt Date: 20060713
  Transmission Date: 20070707
  Serious: No
  Sender: FDA-Public Use
  Company Number: US-BRISTOL-MYERS SQUIBB COMPANY-13442140

PATIENT
  Age: 3 Decade
  Sex: Female
  Weight: 62 kg

DRUGS (4)
  1. ABILIFY [Suspect]
     Indication: DEPRESSION
     Dates: start: 20060525
  2. ABILIFY [Suspect]
     Indication: PSYCHOTIC DISORDER
     Dates: start: 20060525
  3. ZOLOFT [Concomitant]
  4. WELLBUTRIN [Concomitant]

REACTIONS (1)
  - PREGNANCY [None]
